FAERS Safety Report 11596319 (Version 1)
Quarter: 2015Q4

REPORT INFORMATION
  Report Type: Spontaneous
  Country: US (occurrence: None)
  Receive Date: 20151005
  Receipt Date: 20151005
  Transmission Date: 20160304
  Serious: No
  Sender: FDA-Public Use
  Company Number: None

PATIENT
  Age: 44 Year
  Sex: Female

DRUGS (2)
  1. CEFDINIR. [Suspect]
     Active Substance: CEFDINIR
     Indication: EAR INFECTION
     Route: 048
     Dates: start: 20150912, end: 20150917
  2. ADVIL SINUS + COLD [Concomitant]

REACTIONS (9)
  - Mucous stools [None]
  - Dizziness [None]
  - Nasopharyngitis [None]
  - Faeces discoloured [None]
  - Diarrhoea [None]
  - Fatigue [None]
  - Muscle spasms [None]
  - Asthenia [None]
  - Haemorrhage [None]

NARRATIVE: CASE EVENT DATE: 20150924
